FAERS Safety Report 18884464 (Version 1)
Quarter: 2021Q1

REPORT INFORMATION
  Report Type: Spontaneous
  Country: CA (occurrence: CA)
  Receive Date: 20210211
  Receipt Date: 20210211
  Transmission Date: 20210420
  Serious: Yes (Hospitalization)
  Sender: FDA-Public Use
  Company Number: CA-JNJFOC-20210216649

PATIENT
  Age: 17 Year
  Sex: Female
  Weight: 60 kg

DRUGS (15)
  1. CIMETIDINE [Concomitant]
     Active Substance: CIMETIDINE
  2. TRAZODONE [Concomitant]
     Active Substance: TRAZODONE HYDROCHLORIDE
  3. CELECOXIB. [Concomitant]
     Active Substance: CELECOXIB
  4. TRAMADOL HYDROCHLORIDE. [Concomitant]
     Active Substance: TRAMADOL HYDROCHLORIDE
  5. DEXILANT [Concomitant]
     Active Substance: DEXLANSOPRAZOLE
  6. PREDNISONE. [Concomitant]
     Active Substance: PREDNISONE
  7. QUETIAPINE. [Concomitant]
     Active Substance: QUETIAPINE
  8. SIMPONI [Suspect]
     Active Substance: GOLIMUMAB
     Indication: JUVENILE IDIOPATHIC ARTHRITIS
     Route: 058
  9. SERTRALINE [Concomitant]
     Active Substance: SERTRALINE HYDROCHLORIDE
  10. GABAPENTIN. [Concomitant]
     Active Substance: GABAPENTIN
  11. AMOXICILLIN. [Concomitant]
     Active Substance: AMOXICILLIN
  12. DOXYLAMINE SUCCINATE. [Concomitant]
     Active Substance: DOXYLAMINE SUCCINATE
  13. LEFLUNOMIDE. [Concomitant]
     Active Substance: LEFLUNOMIDE
  14. BACLOFEN. [Concomitant]
     Active Substance: BACLOFEN
  15. CETIRIZINE [Concomitant]
     Active Substance: CETIRIZINE HYDROCHLORIDE

REACTIONS (8)
  - Dizziness [Unknown]
  - Lethargy [Unknown]
  - Pallor [Unknown]
  - Syncope [Unknown]
  - Throat tightness [Unknown]
  - Angioedema [Unknown]
  - Oropharyngeal pain [Unknown]
  - Rash [Unknown]
